FAERS Safety Report 7343819-X (Version None)
Quarter: 2011Q1

REPORT INFORMATION
  Report Type: 
  Country: None (occurrence: None)
  Receive Date: 20110310
  Receipt Date: 20110308
  Transmission Date: 20110831
  Serious: Yes (Other)
  Sender: FDA-Public Use
  Company Number: US-ROCHE-744018

PATIENT
  Sex: Male

DRUGS (2)
  1. CLARITIN [Concomitant]
  2. ACCUTANE [Suspect]
     Route: 065
     Dates: start: 20080401, end: 20081001

REACTIONS (3)
  - EMOTIONAL DISTRESS [None]
  - INFLAMMATORY BOWEL DISEASE [None]
  - IRRITABLE BOWEL SYNDROME [None]
